FAERS Safety Report 9395027 (Version 2)
Quarter: 2013Q4

REPORT INFORMATION
  Report Type: Report from Study
  Country: BE (occurrence: BE)
  Receive Date: 20130711
  Receipt Date: 20131112
  Transmission Date: 20140711
  Serious: Yes (Hospitalization)
  Sender: FDA-Public Use
  Company Number: BE-CELGENEUS-013-VELCA-13064369

PATIENT
  Age: 51 Year
  Sex: Male
  Weight: 83 kg

DRUGS (7)
  1. VELCADE [Suspect]
     Indication: PLASMA CELL MYELOMA
     Route: 041
     Dates: start: 20091103, end: 20091113
  2. VELCADE [Suspect]
     Route: 041
     Dates: start: 20091124, end: 20091204
  3. VELCADE [Suspect]
     Route: 041
     Dates: start: 20091215, end: 20091221
  4. DEXAMETHASONE [Suspect]
     Indication: PLASMA CELL MYELOMA
     Route: 048
     Dates: start: 20091103, end: 20091224
  5. THALIDOMIDE [Suspect]
     Indication: PLASMA CELL MYELOMA
     Route: 048
     Dates: start: 200909, end: 200911
  6. ASPIRINE [Concomitant]
     Indication: ANTIPLATELET THERAPY
     Route: 065
  7. CYCLOPHSOPHAMIDE [Concomitant]
     Indication: PRODUCT USED FOR UNKNOWN INDICATION
     Route: 065
     Dates: start: 200909

REACTIONS (1)
  - Superficial spreading melanoma stage unspecified [Recovered/Resolved]
